FAERS Safety Report 4325571-5 (Version None)
Quarter: 2004Q1

REPORT INFORMATION
  Report Type: 
  Country: None (occurrence: None)
  Receive Date: 20040324
  Receipt Date: 20040319
  Transmission Date: 20041129
  Serious: Yes (Hospitalization)
  Sender: FDA-Public Use
  Company Number: 2004-052

PATIENT
  Age: 17 Year
  Sex: Female

DRUGS (3)
  1. METOCLOPRAMIDE [Suspect]
     Indication: HEPATITIS ACUTE
     Dosage: 10MG PO 30MIN AC + QHS
     Dates: start: 20040202, end: 20040204
  2. METOCLOPRAMIDE [Suspect]
     Indication: NAUSEA
     Dosage: 10MG PO 30MIN AC + QHS
     Dates: start: 20040202, end: 20040204
  3. METOCLOPRAMIDE [Suspect]
     Indication: VOMITING
     Dosage: 10MG PO 30MIN AC + QHS
     Dates: start: 20040202, end: 20040204

REACTIONS (1)
  - DYSTONIA [None]
